FAERS Safety Report 11259226 (Version 1)
Quarter: 2015Q3

REPORT INFORMATION
  Report Type: Spontaneous
  Country: US (occurrence: None)
  Receive Date: 20150709
  Receipt Date: 20150709
  Transmission Date: 20151125
  Serious: Yes (Other)
  Sender: FDA-Public Use
  Company Number: None

PATIENT
  Age: 76 Year
  Sex: Female
  Weight: 49 kg

DRUGS (15)
  1. LUMIGAN SOL [Concomitant]
  2. PROLIA [Suspect]
     Active Substance: DENOSUMAB
     Indication: OSTEOPOROSIS
     Dosage: 60 MG INJECTION ?2X YEAR?INJECTION
     Dates: start: 20150428
  3. PROLIA [Suspect]
     Active Substance: DENOSUMAB
     Indication: OSTEOPENIA
     Dosage: 60 MG INJECTION ?2X YEAR?INJECTION
     Dates: start: 20150428
  4. LIPITOR [Concomitant]
     Active Substance: ATORVASTATIN CALCIUM
  5. AZOPT OPTH SUSP [Concomitant]
  6. ELIQUIS [Concomitant]
     Active Substance: APIXABAN
  7. OMEGA 3 [Concomitant]
     Active Substance: OMEGA-3 FATTY ACIDS
  8. COQ10 [Concomitant]
     Active Substance: UBIDECARENONE
  9. VITAMIN C [Concomitant]
     Active Substance: ASCORBIC ACID
  10. VITAMIN D [Concomitant]
     Active Substance: CHOLECALCIFEROL
  11. PROPAFENONE. [Concomitant]
     Active Substance: PROPAFENONE
  12. ASPIRIN. [Concomitant]
     Active Substance: ASPIRIN
  13. MAGNESIUM [Concomitant]
     Active Substance: MAGNESIUM
  14. HYZAAR [Concomitant]
     Active Substance: HYDROCHLOROTHIAZIDE\LOSARTAN POTASSIUM
  15. CALCIUM CARBONATE W/MAG + ZINC [Concomitant]

REACTIONS (5)
  - Vomiting [None]
  - Impaired driving ability [None]
  - Activities of daily living impaired [None]
  - Atrial fibrillation [None]
  - Transient ischaemic attack [None]

NARRATIVE: CASE EVENT DATE: 20150428
